FAERS Safety Report 23362298 (Version 1)
Quarter: 2024Q1

REPORT INFORMATION
  Report Type: Spontaneous
  Country: US (occurrence: US)
  Receive Date: 20240103
  Receipt Date: 20240103
  Transmission Date: 20240409
  Serious: Yes (Other)
  Sender: FDA-Public Use
  Company Number: US-AVADEL CNS PHARMACEUTICALS, LLC-2023AVA00546

PATIENT
  Sex: Female
  Weight: 77.098 kg

DRUGS (3)
  1. LUMRYZ [Suspect]
     Active Substance: SODIUM OXYBATE
     Indication: Narcolepsy
     Dosage: 4.5 G, AT HS (BEDTIME)
     Route: 048
     Dates: end: 202311
  2. LUMRYZ [Suspect]
     Active Substance: SODIUM OXYBATE
     Indication: Cataplexy
  3. VILAZODONE [Concomitant]
     Active Substance: VILAZODONE

REACTIONS (2)
  - Mania [Recovered/Resolved]
  - Insomnia [Recovered/Resolved]
